FAERS Safety Report 17957540 (Version 1)
Quarter: 2020Q2

REPORT INFORMATION
  Report Type: Spontaneous
  Country: US (occurrence: US)
  Receive Date: 20200629
  Receipt Date: 20200629
  Transmission Date: 20200714
  Serious: Yes (Hospitalization, Other)
  Sender: FDA-Public Use
  Company Number: US-ADVANZ PHARMA-202006006776

PATIENT

DRUGS (1)
  1. PARNATE,TRANYLCYPROMINE SULFATE (AUTHORIZED GENERIC) [Suspect]
     Active Substance: TRANYLCYPROMINE SULFATE
     Indication: DEPRESSION
     Dosage: 10 MG, TID,EMTPY BOTTLE FROM OCT- 2017
     Route: 048
     Dates: start: 1992, end: 20180412

REACTIONS (6)
  - Withdrawal syndrome [Unknown]
  - Depression [Unknown]
  - Irritability [Unknown]
  - Crying [Unknown]
  - Therapy cessation [Unknown]
  - Suicidal ideation [Unknown]

NARRATIVE: CASE EVENT DATE: 2018
